FAERS Safety Report 16802395 (Version 1)
Quarter: 2019Q3

REPORT INFORMATION
  Report Type: Spontaneous
  Country: DE (occurrence: DE)
  Receive Date: 20190912
  Receipt Date: 20190912
  Transmission Date: 20191005
  Serious: Yes (Life-Threatening, Hospitalization, Other)
  Sender: FDA-Public Use
  Company Number: PHHY2019DE210219

PATIENT
  Age: 51 Year
  Sex: Male

DRUGS (5)
  1. VOTRIENT [Suspect]
     Active Substance: PAZOPANIB HYDROCHLORIDE
     Indication: SOFT TISSUE SARCOMA
     Dosage: 400 MG, QD
     Route: 048
     Dates: start: 20190815
  2. ARCOXIA [Suspect]
     Active Substance: ETORICOXIB
     Indication: CHEST PAIN
  3. ARCOXIA [Suspect]
     Active Substance: ETORICOXIB
     Indication: POST-THORACOTOMY PAIN SYNDROME
     Dosage: 120 MG, QD
     Route: 048
     Dates: start: 201903, end: 20190901
  4. VOTRIENT [Suspect]
     Active Substance: PAZOPANIB HYDROCHLORIDE
     Dosage: 800 MG, QD
     Route: 048
     Dates: start: 2019, end: 20190901
  5. ARCOXIA [Suspect]
     Active Substance: ETORICOXIB
     Indication: PAIN

REACTIONS (2)
  - Pneumoperitoneum [Recovering/Resolving]
  - Large intestine perforation [Recovering/Resolving]

NARRATIVE: CASE EVENT DATE: 20190901
